FAERS Safety Report 6221316-2 (Version None)
Quarter: 2009Q2

REPORT INFORMATION
  Report Type: 
  Country: None (occurrence: None)
  Receive Date: 20090610
  Receipt Date: 20090511
  Transmission Date: 20091009
  Serious: No
  Sender: FDA-Public Use
  Company Number: US-BAYER-200911478BCC

PATIENT
  Sex: Female

DRUGS (3)
  1. ALEVE [Suspect]
     Indication: BACK PAIN
     Dosage: UNIT DOSE: 220 MG
     Route: 048
     Dates: start: 20090510
  2. UNKNOWN CHOLESTEROL MEDICATION [Concomitant]
     Indication: BLOOD CHOLESTEROL INCREASED
     Route: 065
  3. SYNTHROID [Concomitant]
     Indication: DRUG USE FOR UNKNOWN INDICATION
     Route: 065

REACTIONS (2)
  - ERYTHEMA [None]
  - FEELING HOT [None]
